FAERS Safety Report 6107658-X (Version None)
Quarter: 2009Q1

REPORT INFORMATION
  Report Type: 
  Country: None (occurrence: None)
  Receive Date: 20090306
  Receipt Date: 20090306
  Transmission Date: 20090719
  Serious: Yes (Life-Threatening, Disabling)
  Sender: FDA-Public Use
  Company Number: None

PATIENT
  Age: 66 Year
  Sex: Male
  Weight: 56 kg

DRUGS (2)
  1. COMPAZINE [Suspect]
     Indication: NAUSEA
     Dosage: 10MG EVERY 4 HRS PRN IV PUSH
     Route: 042
     Dates: start: 20090206
  2. COMPAZINE [Suspect]
     Indication: VOMITING
     Dosage: 10MG EVERY 4 HRS PRN IV PUSH
     Route: 042
     Dates: start: 20090206

REACTIONS (1)
  - VENTRICULAR TACHYCARDIA [None]
